FAERS Safety Report 11307248 (Version 1)
Quarter: 2015Q3

REPORT INFORMATION
  Report Type: Spontaneous
  Country: CH (occurrence: CH)
  Receive Date: 20150723
  Receipt Date: 20150723
  Transmission Date: 20151125
  Serious: Yes (Other)
  Sender: FDA-Public Use
  Company Number: CH-009507513-1507CHE007766

PATIENT
  Age: 0 Year
  Sex: Male
  Weight: 2.5 kg

DRUGS (5)
  1. BUDENOFALK [Suspect]
     Active Substance: BUDESONIDE
     Dosage: 3 MG, BID
     Route: 064
  2. URSOFALK [Suspect]
     Active Substance: URSODIOL
     Dosage: UNK, BID
     Route: 064
  3. ACETAMINOPHEN AND CODEINE [Suspect]
     Active Substance: ACETAMINOPHEN\CODEINE PHOSPHATE
     Dosage: 500/30MG, ONCE DAILY
     Route: 064
  4. IMPLANON [Suspect]
     Active Substance: ETONOGESTREL
     Dosage: UNK
     Route: 064
  5. REMICADE [Suspect]
     Active Substance: INFLIXIMAB
     Dosage: UNK, EVERY OTHER WEEK
     Route: 064
     Dates: end: 201408

REACTIONS (2)
  - Premature baby [Recovered/Resolved]
  - Foetal exposure during pregnancy [Recovered/Resolved]

NARRATIVE: CASE EVENT DATE: 2015
